FAERS Safety Report 23772353 (Version 1)
Quarter: 2024Q2

REPORT INFORMATION
  Report Type: Spontaneous
  Country: US (occurrence: None)
  Receive Date: 20240422
  Receipt Date: 20240422
  Transmission Date: 20240716
  Serious: Yes (Other)
  Sender: FDA-Public Use
  Company Number: None

PATIENT
  Age: 88 Year
  Sex: Male

DRUGS (1)
  1. ABIRATERONE ACETATE [Suspect]
     Active Substance: ABIRATERONE ACETATE
     Dates: start: 20240412, end: 20240419

REACTIONS (3)
  - Asthenia [None]
  - Hypoaesthesia [None]
  - Gait inability [None]

NARRATIVE: CASE EVENT DATE: 20240412
